FAERS Safety Report 5296835-6 (Version None)
Quarter: 2007Q2

REPORT INFORMATION
  Report Type: 
  Country: None (occurrence: None)
  Receive Date: 20070413
  Receipt Date: 20070402
  Transmission Date: 20071010
  Serious: Yes (Hospitalization)
  Sender: FDA-Public Use
  Company Number: PHEH2007US04029

PATIENT
  Age: 86 Year
  Sex: Female

DRUGS (7)
  1. AVALIDE [Concomitant]
  2. SYNTHROID [Concomitant]
  3. CLONAZEPAM [Concomitant]
     Indication: RESTLESS LEGS SYNDROME
  4. ZOCOR [Concomitant]
  5. LORTAB [Concomitant]
  6. ACTONEL [Concomitant]
  7. ZELNORM [Suspect]
     Indication: IRRITABLE BOWEL SYNDROME
     Dosage: 6 MG, BID
     Route: 065
     Dates: start: 20050701, end: 20070331

REACTIONS (4)
  - ARTHRALGIA [None]
  - BACK PAIN [None]
  - CHEST PAIN [None]
  - PAIN IN EXTREMITY [None]
